FAERS Safety Report 9552934 (Version 2)
Quarter: 2013Q3

REPORT INFORMATION
  Report Type: Spontaneous
  Country: US (occurrence: US)
  Receive Date: 20130925
  Receipt Date: 20130925
  Transmission Date: 20140515
  Serious: No
  Sender: FDA-Public Use
  Company Number: US-PURDUE-USA-2011-0064694

PATIENT
  Age: 59 Year
  Sex: Female

DRUGS (1)
  1. RYZOLT [Suspect]
     Indication: ARTHRALGIA
     Dosage: 200 MG, DAILY
     Route: 048
     Dates: start: 20110210

REACTIONS (6)
  - Muscle contractions involuntary [Unknown]
  - Disturbance in attention [Not Recovered/Not Resolved]
  - Respiratory disorder [Recovered/Resolved]
  - Dizziness [Recovered/Resolved]
  - Pruritus [Recovered/Resolved]
  - Middle insomnia [Unknown]
